FAERS Safety Report 17554195 (Version 1)
Quarter: 2020Q1

REPORT INFORMATION
  Report Type: Spontaneous
  Country: US (occurrence: US)
  Receive Date: 20200318
  Receipt Date: 20200318
  Transmission Date: 20200409
  Serious: No
  Sender: FDA-Public Use
  Company Number: US-TEVA-2020-US-1205323

PATIENT
  Age: 62 Year
  Sex: Male
  Weight: 70.3 kg

DRUGS (4)
  1. SERTRALINE [Concomitant]
     Active Substance: SERTRALINE HYDROCHLORIDE
     Dosage: 50 MILLIGRAM DAILY; IN THE EVENING
  2. NALTREXONE [Concomitant]
     Active Substance: NALTREXONE
     Dosage: 50 MILLIGRAM DAILY; IN THE MORNING
  3. AUSTEDO [Suspect]
     Active Substance: DEUTETRABENAZINE
     Indication: HUNTINGTON^S DISEASE
     Dosage: 48 MILLIGRAM DAILY; STARTED ABOUT 3-4 YEARS AGO, CURRENTLY TAKING 24 MG IN THE MORNING AND 24MG IN T
     Route: 065
  4. AMANTADINE. [Concomitant]
     Active Substance: AMANTADINE HYDROCHLORIDE
     Dosage: 200 MILLIGRAM DAILY; 100MG IN THE MORNING AND IN THE AFTERNOON
     Dates: start: 201912

REACTIONS (5)
  - Feeling abnormal [Unknown]
  - Weight decreased [Unknown]
  - Inappropriate schedule of product administration [Unknown]
  - Therapeutic product effect decreased [Unknown]
  - Confusional state [Unknown]

NARRATIVE: CASE EVENT DATE: 201912
